FAERS Safety Report 9916908 (Version 2)
Quarter: 2014Q1

REPORT INFORMATION
  Report Type: Spontaneous
  Country: US (occurrence: US)
  Receive Date: 20140221
  Receipt Date: 20140221
  Transmission Date: 20141002
  Serious: Yes (Disabling)
  Sender: FDA-Public Use
  Company Number: US-GE HEALTHCARE MEDICAL DIAGNOSTICS-OSCN-PR-0801S-0026

PATIENT
  Sex: Male

DRUGS (21)
  1. OMNISCAN [Suspect]
     Indication: PRODUCT USED FOR UNKNOWN INDICATION
     Dates: start: 20050414, end: 20050414
  2. OMNISCAN [Suspect]
     Dates: start: 20060319, end: 20060319
  3. OMNISCAN [Suspect]
     Dates: start: 20060320, end: 20060320
  4. OMNISCAN [Suspect]
     Dates: start: 20060802, end: 20060802
  5. OPTIMARK [Suspect]
     Indication: PRODUCT USED FOR UNKNOWN INDICATION
     Dates: start: 20020904, end: 20020904
  6. OPTIMARK [Suspect]
     Dates: start: 20030124, end: 20030124
  7. OPTIMARK [Suspect]
     Dates: start: 20030527, end: 20030527
  8. OPTIMARK [Suspect]
     Dates: start: 20030812, end: 20030812
  9. OPTIMARK [Suspect]
     Dates: start: 20031215, end: 20031215
  10. OPTIMARK [Suspect]
     Dates: start: 20040318, end: 20040318
  11. OPTIMARK [Suspect]
     Dates: start: 20040814, end: 20040814
  12. OPTIMARK [Suspect]
     Dates: start: 20050307, end: 20050307
  13. OPTIMARK [Suspect]
     Dates: start: 20060210, end: 20060210
  14. OPTIMARK [Suspect]
     Dates: start: 20060502, end: 20060502
  15. OPTIMARK [Suspect]
     Dates: start: 20060626, end: 20060626
  16. OPTIMARK [Suspect]
     Dates: start: 20060926, end: 20060926
  17. OPTIMARK [Suspect]
     Dates: start: 20061122, end: 20061122
  18. OPTIMARK [Suspect]
     Dates: start: 20061127, end: 20061127
  19. OPTIMARK [Suspect]
     Dates: start: 20070115, end: 20070115
  20. OPTIMARK [Suspect]
     Dates: start: 20070419, end: 20070419
  21. OPTIMARK [Suspect]
     Dates: start: 20070526, end: 20070526

REACTIONS (1)
  - Nephrogenic systemic fibrosis [Not Recovered/Not Resolved]
